FAERS Safety Report 7860347-3 (Version None)
Quarter: 2011Q4

REPORT INFORMATION
  Report Type: 
  Country: None (occurrence: None)
  Receive Date: 20111027
  Receipt Date: 20111016
  Transmission Date: 20120403
  Serious: Yes (Hospitalization, Other)
  Sender: FDA-Public Use
  Company Number: PHEH2011US04874

PATIENT
  Sex: Male
  Weight: 82.993 kg

DRUGS (7)
  1. CHEMOTHERAPEUTICS NOS [Concomitant]
     Dosage: UNK UKN, UNK
  2. ASPIRIN [Concomitant]
     Dosage: 81 MG, UNK
  3. LEVOTHYROXINE SODIUM [Concomitant]
  4. EXJADE [Suspect]
     Dosage: 1625 MG (ONE 125MG TABLET AND THREE 500MG TABLETS), QD
     Route: 048
  5. METOPROLOL TARTRATE [Suspect]
     Dosage: 25 MG, QD
     Route: 048
  6. LASIX [Concomitant]
     Indication: ATRIAL FIBRILLATION
     Dosage: 50 MG, UNK
  7. LOPRESSOR [Concomitant]
     Dosage: 25 MG, UNK

REACTIONS (4)
  - ATRIAL FIBRILLATION [None]
  - PALPITATIONS [None]
  - CARDIAC FAILURE CONGESTIVE [None]
  - DIARRHOEA [None]
